FAERS Safety Report 10142779 (Version 2)
Quarter: 2014Q2

REPORT INFORMATION
  Report Type: Spontaneous
  Country: US (occurrence: US)
  Receive Date: 20140430
  Receipt Date: 20140514
  Transmission Date: 20141212
  Serious: No
  Sender: FDA-Public Use
  Company Number: US-BAYER-2014-061172

PATIENT
  Sex: Female

DRUGS (2)
  1. GIANVI [Suspect]
     Indication: MENSTRUAL CYCLE MANAGEMENT
     Dosage: UNK
     Dates: start: 201403
  2. GIANVI [Suspect]
     Indication: ACNE

REACTIONS (4)
  - Product blister packaging issue [None]
  - Abnormal withdrawal bleeding [None]
  - Appetite disorder [None]
  - Product commingling [None]
